FAERS Safety Report 10210796 (Version 2)
Quarter: 2015Q1

REPORT INFORMATION
  Report Type: Spontaneous
  Country: US (occurrence: US)
  Receive Date: 20140602
  Receipt Date: 20150319
  Transmission Date: 20150720
  Serious: Yes (Hospitalization, Other)
  Sender: FDA-Public Use
  Company Number: US-BAYER-2014-080843

PATIENT
  Age: 27 Year
  Sex: Female
  Weight: 61.22 kg

DRUGS (1)
  1. MIRENA [Suspect]
     Active Substance: LEVONORGESTREL
     Indication: CONTRACEPTION
     Dosage: 20 MCG/24HR, CONT
     Route: 015
     Dates: start: 20130419, end: 201406

REACTIONS (11)
  - Nervousness [None]
  - Memory impairment [None]
  - Respiratory arrest [None]
  - Balance disorder [None]
  - Seizure [Not Recovered/Not Resolved]
  - Mood swings [None]
  - Mood altered [None]
  - Feeling drunk [None]
  - Cyanosis [None]
  - Amnesia [None]
  - Disorientation [None]

NARRATIVE: CASE EVENT DATE: 20140525
